FAERS Safety Report 8140623-X (Version None)
Quarter: 2012Q1

REPORT INFORMATION
  Report Type: 
  Country: None (occurrence: None)
  Receive Date: 20120216
  Receipt Date: 20120206
  Transmission Date: 20120608
  Serious: Yes (Other)
  Sender: FDA-Public Use
  Company Number: CA-JNJFOC-20120204260

PATIENT
  Sex: Female
  Weight: 81.65 kg

DRUGS (2)
  1. REMICADE [Suspect]
     Dosage: STARTED 2 YEARS AGO
     Route: 042
  2. REMICADE [Suspect]
     Indication: CROHN'S DISEASE
     Route: 042
     Dates: end: 20110601

REACTIONS (6)
  - SCAR [None]
  - DRUG INEFFECTIVE [None]
  - ANAL PROLAPSE [None]
  - ARTHRITIS [None]
  - UNEVALUABLE EVENT [None]
  - ANAL ABSCESS [None]
